FAERS Safety Report 14302179 (Version 1)
Quarter: 2017Q4

REPORT INFORMATION
  Report Type: Spontaneous
  Country: JP (occurrence: JP)
  Receive Date: 20171219
  Receipt Date: 20171219
  Transmission Date: 20180321
  Serious: Yes (Other)
  Sender: FDA-Public Use
  Company Number: JP-PFIZER INC-2017534538

PATIENT
  Age: 9 Decade
  Sex: Male

DRUGS (3)
  1. DIPHENHYDRAMINE. [Suspect]
     Active Substance: DIPHENHYDRAMINE
     Dosage: UNK
  2. DISOPYRAMIDE [Suspect]
     Active Substance: DISOPYRAMIDE
     Indication: PALPITATIONS
     Dosage: UNK
  3. VERAPAMIL [Concomitant]
     Active Substance: VERAPAMIL HYDROCHLORIDE
     Indication: PALPITATIONS
     Dosage: UNK

REACTIONS (2)
  - Urinary retention [Recovered/Resolved]
  - Bradycardia [Unknown]
